FAERS Safety Report 6311602-X (Version None)
Quarter: 2009Q3

REPORT INFORMATION
  Report Type: 
  Country: None (occurrence: None)
  Receive Date: 20090817
  Receipt Date: 20090811
  Transmission Date: 20100115
  Serious: Yes (Hospitalization)
  Sender: FDA-Public Use
  Company Number: A0801625A

PATIENT
  Age: 64 Year
  Sex: Male

DRUGS (11)
  1. ADVAIR HFA [Suspect]
     Indication: CHRONIC OBSTRUCTIVE PULMONARY DISEASE
     Dosage: 1PUFF TWICE PER DAY
     Route: 055
     Dates: start: 20090714, end: 20090811
  2. LANTUS [Concomitant]
  3. PREDNISONE [Concomitant]
  4. SIMVASTATIN [Concomitant]
  5. SPIRIVA [Concomitant]
  6. THEO-DUR [Concomitant]
  7. ASPIRIN [Concomitant]
  8. DILTIAZEM HCL [Concomitant]
  9. NEBULIZER [Concomitant]
  10. FLOMAX [Concomitant]
  11. GLIPIZIDE [Concomitant]

REACTIONS (5)
  - DYSPNOEA [None]
  - OXYGEN SATURATION DECREASED [None]
  - PRODUCT QUALITY ISSUE [None]
  - RALES [None]
  - RESPIRATORY GAS EXCHANGE DISORDER [None]
